FAERS Safety Report 6488376-5 (Version None)
Quarter: 2009Q4

REPORT INFORMATION
  Report Type: 
  Country: None (occurrence: None)
  Receive Date: 20091210
  Receipt Date: 20090903
  Transmission Date: 20100525
  Serious: No
  Sender: FDA-Public Use
  Company Number: US-AMGEN-KDL362944

PATIENT
  Sex: Female
  Weight: 89.9 kg

DRUGS (3)
  1. ENBREL [Suspect]
     Indication: RHEUMATOID ARTHRITIS
     Route: 058
     Dates: start: 20090304, end: 20090616
  2. PLAQUENIL [Concomitant]
     Route: 048
     Dates: start: 20080101
  3. FOLIC ACID [Concomitant]

REACTIONS (9)
  - BURNING SENSATION [None]
  - DIARRHOEA [None]
  - FAECES DISCOLOURED [None]
  - FUNGAL INFECTION [None]
  - HYPOAESTHESIA ORAL [None]
  - PRURITUS GENERALISED [None]
  - RASH GENERALISED [None]
  - SUNBURN [None]
  - URTICARIA [None]
